FAERS Safety Report 24762229 (Version 1)
Quarter: 2024Q4

REPORT INFORMATION
  Report Type: Spontaneous
  Country: CA (occurrence: CA)
  Receive Date: 20241221
  Receipt Date: 20241221
  Transmission Date: 20250114
  Serious: Yes (Other)
  Sender: CELLTRION
  Company Number: CA-PFIZER INC-202400323250

PATIENT

DRUGS (17)
  1. INFLECTRA [Suspect]
     Active Substance: INFLIXIMAB-DYYB
     Indication: Crohn^s disease
     Dosage: 500 MG, INDUCTION DOSES AT WEEK 0, 2 AND 6, THEN EVERY 8 WEEKS
     Route: 042
     Dates: start: 20180329, end: 20180511
  2. INFLECTRA [Suspect]
     Active Substance: INFLIXIMAB-DYYB
     Dosage: 500 MG, EVERY 4 WEEK
     Route: 042
     Dates: start: 20180606, end: 20190415
  3. INFLECTRA [Suspect]
     Active Substance: INFLIXIMAB-DYYB
     Dosage: 600 MG, EVERY 4 WEEK
     Route: 042
     Dates: start: 20190513, end: 20200715
  4. INFLECTRA [Suspect]
     Active Substance: INFLIXIMAB-DYYB
     Dosage: 10 MG/KG, EVERY 4 WEEKS, ROUNDED TO THE NEAREST HUNDRED
     Route: 042
     Dates: start: 20200820
  5. INFLECTRA [Suspect]
     Active Substance: INFLIXIMAB-DYYB
     Dosage: 10 MG/KG, EVERY 4 WEEK (ROUNDED TO THE NEAREST HUNDRED )
     Route: 042
     Dates: start: 20241115
  6. CORTISONE [Concomitant]
     Active Substance: CORTISONE
     Indication: Arthritis
     Dosage: 1 DF (DOSAGE NOT AVAILABLE)
     Route: 065
  7. DECADOLONE [Concomitant]
     Dosage: 1 DF, DOSAGE NOT AVAILABLE - UNKNOWN IF ONGOING
     Route: 065
  8. DILAUDID [Concomitant]
     Active Substance: HYDROMORPHONE HYDROCHLORIDE
     Dosage: 2 MG, AS NEEDED (EVERY 4 TO 6 HOURS)
     Route: 065
  9. METRONIDAZOLE BENZOATE [Concomitant]
     Active Substance: METRONIDAZOLE BENZOATE
     Dosage: 1 DF (DOSAGE NOT AVAILABLE - UNKNOWN IF ONGOING  )
     Route: 065
  10. FOLIC ACID [Concomitant]
     Active Substance: FOLIC ACID
     Dosage: 1 DF, 1X/DAY (DOSAGE NOT AVAILABLE)
     Route: 065
  11. K DUR [Concomitant]
     Dosage: 1 DF, DOSAGE NOT AVAILABLE - UNKNOWN IF ONGOING
     Route: 065
  12. LOMOTIL [Concomitant]
     Active Substance: ATROPINE SULFATE\DIPHENOXYLATE HYDROCHLORIDE
     Dosage: 1 DF (DOSAGE NOT AVAILABLE)
     Route: 065
  13. METHOTREXATE [Concomitant]
     Active Substance: METHOTREXATE
     Dosage: 1 DF, DOSAGE NOT AVAILABLE
     Route: 065
     Dates: start: 2015, end: 2016
  14. METHOTREXATE [Concomitant]
     Active Substance: METHOTREXATE
     Dosage: 1 DF, DOSAGE NOT AVAILABLE
     Route: 065
     Dates: start: 2015, end: 2016
  15. MORPHINE [Concomitant]
     Active Substance: MORPHINE
     Dosage: 1 DF (DOSAGE NOT AVAILABLE - UNKNOWN IF ONGOING)
     Route: 065
  16. PREDNISONE [Concomitant]
     Active Substance: PREDNISONE
     Dosage: 30 MG, UNKNOWN IF ONGOING
     Route: 065
  17. ACETAMINOPHEN\TRAMADOL [Concomitant]
     Active Substance: ACETAMINOPHEN\TRAMADOL
     Dosage: 1 DF (DOSAGE NOT AVAILABLE - UNKNOWN IF ONGOING)
     Route: 065

REACTIONS (1)
  - Abortion spontaneous [Unknown]

NARRATIVE: CASE EVENT DATE: 20241212
